FAERS Safety Report 7124756-2 (Version None)
Quarter: 2010Q4

REPORT INFORMATION
  Report Type: 
  Country: None (occurrence: None)
  Receive Date: 20101123
  Receipt Date: 20101123
  Transmission Date: 20110411
  Serious: Yes (Hospitalization)
  Sender: FDA-Public Use
  Company Number: None

PATIENT
  Age: 65 Year
  Sex: Male

DRUGS (5)
  1. HYDROCHLOROTHIAZIDE [Suspect]
     Indication: HYPERTENSION
     Dosage: 12.5 MG DAILY
  2. NEXIUM [Concomitant]
  3. AUGMENTIN '125' [Concomitant]
  4. DIOVAN [Concomitant]
  5. TRILEPTAL [Concomitant]

REACTIONS (2)
  - DIZZINESS [None]
  - HYPONATRAEMIA [None]
